FAERS Safety Report 18371947 (Version 3)
Quarter: 2020Q4

REPORT INFORMATION
  Report Type: Spontaneous
  Country: BR (occurrence: BR)
  Receive Date: 20201012
  Receipt Date: 20201111
  Transmission Date: 20210114
  Serious: Yes (Other)
  Sender: FDA-Public Use
  Company Number: BR-TOLMAR, INC.-20BR022964

PATIENT
  Age: 66 Year
  Sex: Male

DRUGS (4)
  1. ELIGARD [Suspect]
     Active Substance: LEUPROLIDE ACETATE
     Indication: PRODUCT USED FOR UNKNOWN INDICATION
     Dosage: 45 MG
     Route: 065
     Dates: start: 20200415
  2. ELIGARD [Suspect]
     Active Substance: LEUPROLIDE ACETATE
     Dosage: 45 MG
     Dates: start: 20200720
  3. ELIGARD [Suspect]
     Active Substance: LEUPROLIDE ACETATE
     Dosage: 45 MG
  4. DOXAZOSINE [DOXAZOSIN] [Concomitant]
     Active Substance: DOXAZOSIN MESYLATE
     Indication: PRODUCT USED FOR UNKNOWN INDICATION
     Dosage: 4 MG, QD (4MG/DAY)
     Route: 065

REACTIONS (3)
  - Prostatic specific antigen abnormal [Recovered/Resolved]
  - Drug ineffective [Not Recovered/Not Resolved]
  - Blood testosterone abnormal [Not Recovered/Not Resolved]

NARRATIVE: CASE EVENT DATE: 2020
